FAERS Safety Report 4880078-1 (Version None)
Quarter: 2006Q1

REPORT INFORMATION
  Report Type: 
  Country: None (occurrence: None)
  Receive Date: 20060111
  Receipt Date: 20060104
  Transmission Date: 20060701
  Serious: Yes (Hospitalization)
  Sender: FDA-Public Use
  Company Number: 2005BI020061

PATIENT
  Age: 60 Year
  Sex: Female

DRUGS (2)
  1. AVONEX [Suspect]
     Indication: MULTIPLE SCLEROSIS
     Dosage: 30 UG; QW; IM
     Route: 030
     Dates: start: 20050725
  2. ANTI DEPRESSANTS [Concomitant]

REACTIONS (5)
  - BODY MASS INDEX DECREASED [None]
  - EMOTIONAL DISORDER [None]
  - HYPERTENSION [None]
  - NAUSEA [None]
  - VOMITING [None]
